FAERS Safety Report 5063270-5 (Version None)
Quarter: 2006Q3

REPORT INFORMATION
  Report Type: 
  Country: None (occurrence: None)
  Receive Date: 20060724
  Receipt Date: 20060724
  Transmission Date: 20061208
  Serious: Yes (Life-Threatening, Other)
  Sender: FDA-Public Use
  Company Number: None

PATIENT
  Age: 33 Year
  Sex: Female
  Weight: 99.7913 kg

DRUGS (1)
  1. NEURONTIN [Suspect]
     Indication: PAIN
     Dosage: 2400 ONCE A DAY PO
     Route: 048

REACTIONS (2)
  - DIABETES MELLITUS [None]
  - POLYNEUROPATHY [None]
